FAERS Safety Report 7573987-6 (Version None)
Quarter: 2011Q2

REPORT INFORMATION
  Report Type: 
  Country: None (occurrence: None)
  Receive Date: 20110627
  Receipt Date: 20110623
  Transmission Date: 20111010
  Serious: Yes (Other)
  Sender: FDA-Public Use
  Company Number: NL-ABBOTT-11P-114-0713777-00

PATIENT
  Sex: Female
  Weight: 90 kg

DRUGS (9)
  1. LIVIAL [Concomitant]
     Indication: HOT FLUSH
  2. LEUPROLIDE ACETATE [Suspect]
     Indication: ENDOMETRIOSIS
     Route: 058
     Dates: start: 20101122, end: 20110201
  3. NAPROXEN [Concomitant]
     Indication: ENDOMETRIOSIS
     Route: 048
  4. OMEPRAZOLE [Concomitant]
     Indication: GASTRIC DISORDER
     Route: 048
  5. LEUPROLIDE ACETATE [Suspect]
     Indication: ENDOMETRIOSIS
     Route: 058
     Dates: start: 20110320, end: 20110320
  6. OMEPRAZOLE [Concomitant]
     Indication: PROPHYLAXIS
  7. DIFLONAC NATRIUM [Concomitant]
     Indication: ENDOMETRIOSIS
     Route: 048
     Dates: start: 20100901
  8. TRAMADOL HCL [Concomitant]
     Indication: ENDOMETRIOSIS
     Route: 048
     Dates: start: 20101001
  9. LIVIAL [Concomitant]
     Indication: PROPHYLAXIS
     Route: 048
     Dates: start: 20110201

REACTIONS (4)
  - RENAL CYST [None]
  - SKIN DISORDER [None]
  - ACNE [None]
  - RASH [None]
